FAERS Safety Report 5762665-1 (Version None)
Quarter: 2008Q2

REPORT INFORMATION
  Report Type: 
  Country: None (occurrence: None)
  Receive Date: 20080609
  Receipt Date: 20080526
  Transmission Date: 20081010
  Serious: Yes (Hospitalization)
  Sender: FDA-Public Use
  Company Number: IT-ASTRAZENECA-2007SE03603

PATIENT
  Age: 28583 Day
  Sex: Female

DRUGS (6)
  1. CANDESARTAN CILEXETIL [Suspect]
     Indication: CARDIAC FAILURE
     Route: 048
     Dates: start: 20070223, end: 20070514
  2. LANOXIN [Concomitant]
     Indication: CARDIAC FAILURE
     Route: 048
  3. DILTIAZEM [Concomitant]
     Indication: CARDIAC FAILURE
     Route: 048
  4. LASITONE [Concomitant]
     Indication: CARDIAC FAILURE
     Route: 048
  5. TRIATEC [Concomitant]
     Indication: CARDIAC FAILURE
     Route: 048
  6. ESOPRAL [Concomitant]
     Indication: GASTRITIS
     Route: 048

REACTIONS (1)
  - HYPERKALAEMIA [None]
